FAERS Safety Report 4864934-6 (Version None)
Quarter: 2005Q4

REPORT INFORMATION
  Report Type: 
  Country: None (occurrence: None)
  Receive Date: 20051201
  Receipt Date: 20050803
  Transmission Date: 20060501
  Serious: No
  Sender: FDA-Public Use
  Company Number: 2005PV000745

PATIENT
  Age: 70 Year
  Sex: Female
  Weight: 79.8331 kg

DRUGS (12)
  1. BYETTA [Suspect]
     Indication: DIABETES MELLITUS NON-INSULIN-DEPENDENT
     Dosage: SEE IMAGE
     Route: 058
     Dates: start: 20050615, end: 20050708
  2. BYETTA [Suspect]
     Indication: DIABETES MELLITUS NON-INSULIN-DEPENDENT
     Dosage: SEE IMAGE
     Route: 058
     Dates: start: 20050709
  3. CARDIZEM [Concomitant]
  4. COZAAR [Concomitant]
  5. PROTONIX [Concomitant]
  6. ZANTAC [Concomitant]
  7. LASIX [Concomitant]
  8. GLUCOPHAGE [Concomitant]
  9. LOVASTATIN [Concomitant]
  10. GABAPENTIN [Concomitant]
  11. VIVELLE-DOT [Concomitant]
  12. VITAMINS [Concomitant]

REACTIONS (3)
  - EARLY SATIETY [None]
  - INJECTION SITE BRUISING [None]
  - WEIGHT DECREASED [None]
